FAERS Safety Report 9804044 (Version 2)
Quarter: 2014Q1

REPORT INFORMATION
  Report Type: Spontaneous
  Country: US (occurrence: US)
  Receive Date: 20140108
  Receipt Date: 20140313
  Transmission Date: 20141002
  Serious: Yes (Hospitalization)
  Sender: FDA-Public Use
  Company Number: US-ELI_LILLY_AND_COMPANY-US201401000985

PATIENT
  Sex: Female

DRUGS (1)
  1. FORTEO [Suspect]
     Indication: PRODUCT USED FOR UNKNOWN INDICATION
     Dosage: UNK, QD
     Route: 065
     Dates: start: 200805, end: 201006

REACTIONS (5)
  - Cellulitis [Recovered/Resolved]
  - Bone disorder [Unknown]
  - Incorrect drug administration duration [Unknown]
  - Disease complication [Unknown]
  - Drug hypersensitivity [Unknown]
